FAERS Safety Report 7027159-4 (Version None)
Quarter: 2010Q4

REPORT INFORMATION
  Report Type: 
  Country: None (occurrence: None)
  Receive Date: 20101001
  Receipt Date: 20101001
  Transmission Date: 20110411
  Serious: No
  Sender: FDA-Public Use
  Company Number: None

PATIENT
  Age: 61 Year
  Sex: Male
  Weight: 68.0396 kg

DRUGS (1)
  1. COZAAR [Suspect]
     Dosage: 50-100MG QD PO
     Route: 048

REACTIONS (1)
  - PRODUCT PACKAGING ISSUE [None]
